FAERS Safety Report 4531423-8 (Version None)
Quarter: 2004Q4

REPORT INFORMATION
  Report Type: 
  Country: None (occurrence: None)
  Receive Date: 20041217
  Receipt Date: 20041206
  Transmission Date: 20050328
  Serious: Yes (Other)
  Sender: FDA-Public Use
  Company Number: 2004104091

PATIENT
  Sex: Female
  Weight: 114.76 kg

DRUGS (3)
  1. ROLAIDS [Suspect]
     Indication: DYSPEPSIA
     Dosage: 2 TABS PRN, ORAL
     Route: 048
  2. AMITRIPTYLINE HCL [Concomitant]
  3. DRUG, UNSPECIFIED (DRUG, UNSPECIFIED) [Concomitant]

REACTIONS (5)
  - DYSPEPSIA [None]
  - GALLBLADDER DISORDER [None]
  - IRRITABLE BOWEL SYNDROME [None]
  - MEDICAL DIET [None]
  - PAIN [None]
